FAERS Safety Report 4514268-4 (Version None)
Quarter: 2004Q4

REPORT INFORMATION
  Report Type: 
  Country: None (occurrence: None)
  Receive Date: 20041124
  Receipt Date: 20041105
  Transmission Date: 20050328
  Serious: Yes (Death, Hospitalization)
  Sender: FDA-Public Use
  Company Number: CA_041007371

PATIENT
  Age: 45 Year
  Sex: Female

DRUGS (3)
  1. ZYPREXA [Suspect]
     Indication: PSYCHOTIC DISORDER
     Dosage: 10 MG
  2. CLONAZEPAM [Concomitant]
  3. PROPRANOLOL [Concomitant]

REACTIONS (7)
  - AKATHISIA [None]
  - DYSPHAGIA [None]
  - DYSTONIA [None]
  - EXTRAPYRAMIDAL DISORDER [None]
  - MUSCLE RIGIDITY [None]
  - PNEUMONIA ASPIRATION [None]
  - TARDIVE DYSKINESIA [None]
